FAERS Safety Report 5326167-9 (Version None)
Quarter: 2007Q2

REPORT INFORMATION
  Report Type: 
  Country: None (occurrence: None)
  Receive Date: 20070510
  Receipt Date: 20070427
  Transmission Date: 20071010
  Serious: Yes (Other)
  Sender: FDA-Public Use
  Company Number: 2007BI009630

PATIENT
  Age: 38 Year
  Sex: Female

DRUGS (3)
  1. AVONEX [Suspect]
     Indication: MULTIPLE SCLEROSIS
     Dosage: 30 UG;QW;IM
     Route: 030
     Dates: start: 20000101, end: 20030101
  2. AVONEX [Suspect]
     Indication: MULTIPLE SCLEROSIS
     Dosage: 30 UG;QW;IM
     Route: 030
     Dates: start: 20040401, end: 20060401
  3. AVONEX [Suspect]
     Indication: MULTIPLE SCLEROSIS
     Dosage: 30UG;QW;IM
     Route: 030
     Dates: start: 20070101

REACTIONS (6)
  - BURSITIS INFECTIVE [None]
  - LIGAMENT OPERATION [None]
  - NERVE INJURY [None]
  - OSTEOMYELITIS [None]
  - STAPHYLOCOCCAL INFECTION [None]
  - SWELLING [None]
